FAERS Safety Report 13080237 (Version 2)
Quarter: 2017Q1

REPORT INFORMATION
  Report Type: Spontaneous
  Country: IT (occurrence: IT)
  Receive Date: 20170103
  Receipt Date: 20170201
  Transmission Date: 20170428
  Serious: Yes (Other)
  Sender: FDA-Public Use
  Company Number: PHHY2016IT181012

PATIENT
  Age: 68 Year
  Sex: Female

DRUGS (2)
  1. EXEMESTANE. [Concomitant]
     Active Substance: EXEMESTANE
     Indication: PRODUCT USED FOR UNKNOWN INDICATION
     Dosage: 25 MG, UNK
     Route: 048
     Dates: start: 20161124, end: 20161207
  2. AFINITOR [Suspect]
     Active Substance: EVEROLIMUS
     Indication: BREAST CANCER
     Dosage: 10 MG, QD (DAILY)
     Route: 048
     Dates: start: 20161124, end: 20161207

REACTIONS (17)
  - Thrombocytopenia [Recovering/Resolving]
  - Cough [Recovering/Resolving]
  - Hypercholesterolaemia [Recovering/Resolving]
  - Fatigue [Unknown]
  - Skin lesion [Unknown]
  - Malaise [Unknown]
  - Crepitations [Unknown]
  - Pyrexia [Unknown]
  - Interstitial lung disease [Recovering/Resolving]
  - Hypomagnesaemia [Unknown]
  - Acute interstitial pneumonitis [Unknown]
  - Anaemia [Unknown]
  - Asthenia [Recovering/Resolving]
  - Herpes zoster [Unknown]
  - Skin wound [Recovering/Resolving]
  - Diabetes mellitus [Unknown]
  - Wheezing [Unknown]

NARRATIVE: CASE EVENT DATE: 20161207
